FAERS Safety Report 4880123-3 (Version None)
Quarter: 2006Q1

REPORT INFORMATION
  Report Type: 
  Country: None (occurrence: None)
  Receive Date: 20060113
  Receipt Date: 20060104
  Transmission Date: 20060701
  Serious: Yes (Other)
  Sender: FDA-Public Use
  Company Number: PHBS2006BE00628

PATIENT
  Sex: Female

DRUGS (2)
  1. HERCEPTIN [Concomitant]
  2. ZOMETA [Suspect]
     Indication: BREAST CANCER
     Route: 065

REACTIONS (1)
  - OSTEONECROSIS [None]
